FAERS Safety Report 15778414 (Version 1)
Quarter: 2018Q4

REPORT INFORMATION
  Report Type: Spontaneous
  Country: ES (occurrence: ES)
  Receive Date: 20181231
  Receipt Date: 20181231
  Transmission Date: 20190205
  Serious: Yes (Disabling)
  Sender: FDA-Public Use
  Company Number: ES-009507513-1812ESP011070

PATIENT
  Sex: Male

DRUGS (2)
  1. PROSCAR [Suspect]
     Active Substance: FINASTERIDE
     Indication: ALOPECIA
     Dosage: HE SPLIT THE TABLETS IN 4 PARTS, SO HE WAS TAKING APPROXIMATELY 1.25MG DAILY
     Route: 048
     Dates: start: 2010, end: 201810
  2. PROPECIA [Suspect]
     Active Substance: FINASTERIDE
     Indication: ALOPECIA
     Dosage: UNK
     Route: 048
     Dates: start: 2008, end: 2010

REACTIONS (14)
  - Libido decreased [Not Recovered/Not Resolved]
  - Poor quality sleep [Recovered/Resolved]
  - Blood testosterone free abnormal [Unknown]
  - Blood zinc decreased [Unknown]
  - Movement disorder [Unknown]
  - Fatigue [Not Recovered/Not Resolved]
  - Blood testosterone decreased [Unknown]
  - Malaise [Unknown]
  - Dihydrotestosterone decreased [Unknown]
  - Wrong technique in product usage process [Unknown]
  - Intentional product misuse [Unknown]
  - Product dose omission [Unknown]
  - Product use in unapproved indication [Unknown]
  - Overdose [Unknown]

NARRATIVE: CASE EVENT DATE: 2010
